FAERS Safety Report 10285177 (Version 1)
Quarter: 2014Q3

REPORT INFORMATION
  Report Type: Spontaneous
  Country: US (occurrence: US)
  Receive Date: 20140708
  Receipt Date: 20140708
  Transmission Date: 20150326
  Serious: Yes (Hospitalization, Disabling)
  Sender: FDA-Public Use
  Company Number: US-WATSON-2014-14381

PATIENT
  Age: 82 Year
  Sex: Female

DRUGS (2)
  1. HALOPERIDOL (WATSON LABORATORIES) [Suspect]
     Active Substance: HALOPERIDOL
     Dosage: 3.5 MG, UNK
     Route: 065
  2. HALOPERIDOL (WATSON LABORATORIES) [Suspect]
     Active Substance: HALOPERIDOL
     Indication: PRODUCT USED FOR UNKNOWN INDICATION
     Dosage: 17.5 MG, DAILY
     Route: 065

REACTIONS (1)
  - Parkinsonism [Not Recovered/Not Resolved]
